FAERS Safety Report 11515913 (Version 1)
Quarter: 2015Q3

REPORT INFORMATION
  Report Type: Spontaneous
  Country: US (occurrence: US)
  Receive Date: 20150916
  Receipt Date: 20150916
  Transmission Date: 20151125
  Serious: No
  Sender: FDA-Public Use
  Company Number: US-BAUSCH-BL-2015-015237

PATIENT
  Age: 64 Year
  Sex: Female
  Weight: 68.1 kg

DRUGS (1)
  1. DIASTAT [Suspect]
     Active Substance: DIAZEPAM
     Indication: RECTAL SPASM
     Route: 054

REACTIONS (3)
  - Off label use [Not Recovered/Not Resolved]
  - Somnolence [Unknown]
  - Incorrect dose administered [Unknown]
